FAERS Safety Report 21909996 (Version 1)
Quarter: 2023Q1

REPORT INFORMATION
  Report Type: Spontaneous
  Country: PL (occurrence: PL)
  Receive Date: 20230125
  Receipt Date: 20230125
  Transmission Date: 20230417
  Serious: Yes (Hospitalization)
  Sender: FDA-Public Use
  Company Number: PL-ABBVIE-4145922

PATIENT
  Age: 78 Year
  Sex: Female

DRUGS (1)
  1. VENETOCLAX [Suspect]
     Active Substance: VENETOCLAX
     Indication: Chronic lymphocytic leukaemia
     Dosage: 50 MILLIGRAM

REACTIONS (4)
  - Vomiting [Recovering/Resolving]
  - Hyponatraemia [Recovering/Resolving]
  - Dehydration [Recovering/Resolving]
  - Gastrointestinal infection [Recovering/Resolving]
